FAERS Safety Report 8808057 (Version 5)
Quarter: 2013Q2

REPORT INFORMATION
  Report Type: Spontaneous
  Country: US (occurrence: US)
  Receive Date: 20120926
  Receipt Date: 20130517
  Transmission Date: 20140414
  Serious: Yes (Hospitalization)
  Sender: FDA-Public Use
  Company Number: US-B.I. PHARMACEUTICALS,INC./RIDGEFIELD-2012-BP-22894BP

PATIENT
  Age: 67 Year
  Sex: Male
  Weight: 90.72 kg

DRUGS (6)
  1. PRADAXA [Suspect]
     Indication: ATRIAL FIBRILLATION
     Dosage: 300 MG
     Dates: start: 20110822, end: 20120424
  2. LASIX [Concomitant]
     Dates: start: 1999
  3. PREDNISONE [Concomitant]
     Dates: start: 2008
  4. RAPAMUNE [Concomitant]
     Dates: start: 2008
  5. COLACE [Concomitant]
     Dates: start: 2008
  6. DILTIAZEM [Concomitant]
     Dates: start: 1999, end: 201209

REACTIONS (2)
  - Gastrointestinal ulcer haemorrhage [Unknown]
  - Dyspnoea [Recovered/Resolved]
